FAERS Safety Report 10216321 (Version 1)
Quarter: 2014Q2

REPORT INFORMATION
  Report Type: Spontaneous
  Country: US (occurrence: None)
  Receive Date: 20140603
  Receipt Date: 20140603
  Transmission Date: 20141212
  Serious: No
  Sender: FDA-Public Use
  Company Number: None

PATIENT
  Age: 40 Year
  Sex: Female
  Weight: 104.33 kg

DRUGS (1)
  1. NEXPLANON 68 MG [Suspect]
     Indication: CONTRACEPTION
     Dosage: ONE TIME INSERTION EVERY 3 YEARS GIVEN INTO/UNDER THE SKIN
     Route: 058
     Dates: start: 20131126, end: 20140602

REACTIONS (15)
  - Menometrorrhagia [None]
  - Fluid retention [None]
  - Emotional distress [None]
  - Weight increased [None]
  - Headache [None]
  - Breast tenderness [None]
  - Back pain [None]
  - Nausea [None]
  - Nervousness [None]
  - Anxiety [None]
  - Injection site pain [None]
  - Flatulence [None]
  - Increased appetite [None]
  - Libido decreased [None]
  - Hot flush [None]
